FAERS Safety Report 6918874-9 (Version None)
Quarter: 2010Q3

REPORT INFORMATION
  Report Type: 
  Country: None (occurrence: None)
  Receive Date: 20100811
  Receipt Date: 20100526
  Transmission Date: 20110219
  Serious: No
  Sender: FDA-Public Use
  Company Number: US-TYCO HEALTHCARE/MALLINCKRODT-T201001448

PATIENT

DRUGS (3)
  1. PENNSAID [Suspect]
     Dosage: 40 GTT, QID
     Dates: start: 20100526
  2. PRILOSEC [Concomitant]
     Dosage: 20 MG, QD
  3. COZAAR [Concomitant]
     Dosage: 100 MG, QD

REACTIONS (4)
  - BREATH ODOUR [None]
  - DYSGEUSIA [None]
  - JOINT SWELLING [None]
  - OFF LABEL USE [None]
